FAERS Safety Report 5777736-3 (Version None)
Quarter: 2008Q2

REPORT INFORMATION
  Report Type: 
  Country: None (occurrence: None)
  Receive Date: 20080618
  Receipt Date: 20070618
  Transmission Date: 20081010
  Serious: Yes (Death)
  Sender: FDA-Public Use
  Company Number: BR-BOEHRINGER INGELHEIM GMBH, GERMANY-2008-BP-09426BR

PATIENT

DRUGS (2)
  1. SPIRIVA [Suspect]
  2. CORTICOSTEROIDS [Concomitant]
     Route: 055

REACTIONS (1)
  - RESPIRATORY TRACT INFECTION [None]
